FAERS Safety Report 9629977 (Version 1)
Quarter: 2013Q4

REPORT INFORMATION
  Report Type: Report from Study
  Country: US (occurrence: US)
  Receive Date: 20131017
  Receipt Date: 20131017
  Transmission Date: 20140711
  Serious: Yes (Hospitalization)
  Sender: FDA-Public Use
  Company Number: US-ABBVIE-13P-163-1155702-00

PATIENT
  Sex: Female
  Weight: 105.33 kg

DRUGS (15)
  1. HUMIRA [Suspect]
     Indication: PRODUCT USED FOR UNKNOWN INDICATION
     Route: 058
  2. LASIX [Concomitant]
     Indication: PRODUCT USED FOR UNKNOWN INDICATION
  3. KLONOPIN [Concomitant]
     Indication: PRODUCT USED FOR UNKNOWN INDICATION
  4. FOLIC ACID [Concomitant]
     Indication: PRODUCT USED FOR UNKNOWN INDICATION
  5. NORTRIPTYLIN [Concomitant]
     Indication: PRODUCT USED FOR UNKNOWN INDICATION
  6. PROCARDIA [Concomitant]
     Indication: PRODUCT USED FOR UNKNOWN INDICATION
  7. IRON [Concomitant]
     Indication: PRODUCT USED FOR UNKNOWN INDICATION
  8. PANTOPRAZOLE [Concomitant]
     Indication: PRODUCT USED FOR UNKNOWN INDICATION
  9. CO Q 10 [Concomitant]
     Indication: PRODUCT USED FOR UNKNOWN INDICATION
  10. LORTAB 5 [Concomitant]
     Indication: PRODUCT USED FOR UNKNOWN INDICATION
  11. PRAVACHOL [Concomitant]
     Indication: PRODUCT USED FOR UNKNOWN INDICATION
  12. LAXATIVE [Concomitant]
     Indication: PRODUCT USED FOR UNKNOWN INDICATION
  13. BENADRYL [Concomitant]
     Indication: PRODUCT USED FOR UNKNOWN INDICATION
  14. METHOTREXATE [Concomitant]
     Indication: PRODUCT USED FOR UNKNOWN INDICATION
  15. VITAMIN D NOS [Concomitant]
     Indication: PRODUCT USED FOR UNKNOWN INDICATION

REACTIONS (3)
  - Blood urine present [Unknown]
  - Haematochezia [Unknown]
  - Dizziness [Unknown]
